FAERS Safety Report 8922546 (Version 1)
Quarter: 2012Q4

REPORT INFORMATION
  Report Type: 
  Country: SE (occurrence: SE)
  Receive Date: 20121123
  Receipt Date: 20121123
  Transmission Date: 20130627
  Serious: Yes (Hospitalization)
  Sender: FDA-Public Use
  Company Number: SE-PFIZER INC-2012290661

PATIENT
  Age: 67 Year
  Sex: Female
  Weight: 73.1 kg

DRUGS (2)
  1. GENOTROPIN [Suspect]
     Dosage: 0.2 mg, 1x/day, 7injections/week
     Route: 058
     Dates: start: 20011215
  2. LANZO [Concomitant]
     Indication: GASTRITIS
     Dosage: UNK
     Dates: start: 20001023

REACTIONS (1)
  - Arthropathy [Unknown]
